FAERS Safety Report 7232921-9 (Version None)
Quarter: 2011Q1

REPORT INFORMATION
  Report Type: 
  Country: None (occurrence: None)
  Receive Date: 20110119
  Receipt Date: 20110110
  Transmission Date: 20110831
  Serious: Yes (Other)
  Sender: FDA-Public Use
  Company Number: US-ASTRAZENECA-2011SE01419

PATIENT
  Age: 78 Year
  Sex: Male

DRUGS (5)
  1. OMEPRAZOLE [Suspect]
     Route: 048
  2. CLARITIN [Suspect]
     Indication: SINUSITIS
     Dosage: UNKNOWN DOSE AS NEEDED
  3. TEMAZEPAM [Suspect]
     Indication: SLEEP DISORDER
  4. LORAZEPAM [Suspect]
     Indication: ANXIETY
  5. METOPROLOL TARTRATE [Suspect]

REACTIONS (4)
  - GOUT [None]
  - CEREBROVASCULAR ACCIDENT [None]
  - CORONARY ARTERY BYPASS [None]
  - RHEUMATOID ARTHRITIS [None]
